FAERS Safety Report 4687067-0 (Version None)
Quarter: 2005Q2

REPORT INFORMATION
  Report Type: 
  Country: None (occurrence: None)
  Receive Date: 20050607
  Receipt Date: 20050524
  Transmission Date: 20051028
  Serious: Yes (Other)
  Sender: FDA-Public Use
  Company Number: USA050598873

PATIENT
  Age: 75 Year
  Sex: Female

DRUGS (4)
  1. FORTEO [Suspect]
     Dates: start: 20050301
  2. SYNTHROID [Concomitant]
  3. NEXIUM [Concomitant]
  4. LIPITOR [Concomitant]

REACTIONS (2)
  - BREAST CANCER FEMALE [None]
  - OOPHORECTOMY [None]
